FAERS Safety Report 9976064 (Version 2)
Quarter: 2014Q1

REPORT INFORMATION
  Report Type: Spontaneous
  Country: JP (occurrence: JP)
  Receive Date: 20140306
  Receipt Date: 20140328
  Transmission Date: 20141002
  Serious: No
  Sender: FDA-Public Use
  Company Number: JP-B.I. PHARMACEUTICALS,INC./RIDGEFIELD-2014-BI-09720NB

PATIENT
  Age: 73 Year
  Sex: Male
  Weight: 72 kg

DRUGS (6)
  1. TRAZENTA [Suspect]
     Indication: TYPE 2 DIABETES MELLITUS
     Dosage: 5 MG
     Route: 048
     Dates: start: 201312, end: 20131218
  2. AVAPRO [Suspect]
     Indication: PRODUCT USED FOR UNKNOWN INDICATION
     Dosage: 100 MG
     Route: 048
     Dates: start: 201312
  3. PERSANTIN / DIPYRIDAMOLE [Concomitant]
     Dosage: 50 MG
     Route: 048
     Dates: start: 20130904
  4. AMLODIPINE / AMLODIPINE BESILATE [Concomitant]
     Dosage: 5 MG
     Route: 048
     Dates: start: 20130904
  5. MEVALOTIN / PRAVASTATIN SODIUM [Concomitant]
     Dosage: 5 MG
     Route: 048
     Dates: start: 20130904
  6. METHYCOBAL / MECOBALAMIN [Concomitant]
     Dosage: 1500 MCG
     Route: 048
     Dates: start: 20130830

REACTIONS (1)
  - Liver disorder [Not Recovered/Not Resolved]
